FAERS Safety Report 8908003 (Version 3)
Quarter: 2015Q4

REPORT INFORMATION
  Report Type: Spontaneous
  Country: ES (occurrence: ES)
  Receive Date: 20121113
  Receipt Date: 20151127
  Transmission Date: 20160305
  Serious: Yes (Other)
  Sender: FDA-Public Use
  Company Number: ES-009507513-1211ESP005299

PATIENT
  Age: 29 Year
  Sex: Female
  Weight: 52 kg

DRUGS (2)
  1. TIMOLOL MALEATE. [Suspect]
     Active Substance: TIMOLOL MALEATE
     Indication: GLAUCOMA
     Dosage: UNK
     Route: 047
  2. DORZOLAMIDE HYDROCHLORIDE (+) TIMOLOL MALEATE [Suspect]
     Active Substance: DORZOLAMIDE HYDROCHLORIDE\TIMOLOL MALEATE
     Indication: DEVELOPMENTAL GLAUCOMA
     Dosage: UNK
     Route: 047
     Dates: start: 2006

REACTIONS (5)
  - Maternal exposure timing unspecified [Unknown]
  - Premature delivery [Unknown]
  - Drug ineffective [Unknown]
  - Exposure during breast feeding [Unknown]
  - Foetal growth restriction [Unknown]
